FAERS Safety Report 10889402 (Version 2)
Quarter: 2015Q1

REPORT INFORMATION
  Report Type: Report from Study
  Country: KR (occurrence: KR)
  Receive Date: 20150305
  Receipt Date: 20150312
  Transmission Date: 20150721
  Serious: Yes (Hospitalization)
  Sender: FDA-Public Use
  Company Number: KR-B.I. PHARMACEUTICALS,INC./RIDGEFIELD-2015-BI-10422BI

PATIENT
  Age: 72 Year
  Sex: Female
  Weight: 68 kg

DRUGS (12)
  1. LOPERAMIDE [Concomitant]
     Active Substance: LOPERAMIDE
     Indication: DIARRHOEA
     Dosage: DAILY DOSE: 2MG PRN
     Route: 048
     Dates: start: 20140718
  2. CILNIDIPINE [Concomitant]
     Active Substance: CILNIDIPINE
     Indication: HYPERTENSION
     Dosage: 10 MG
     Route: 048
  3. FLUTRIMAZOLE [Concomitant]
     Indication: PARONYCHIA
     Dosage: 40 MG
     Route: 050
     Dates: start: 20140717
  4. CIPROFLOXACIN. [Concomitant]
     Active Substance: CIPROFLOXACIN
     Indication: INFECTIOUS COLITIS
     Route: 065
     Dates: start: 2015
  5. ACETAMINOPHEN. [Concomitant]
     Active Substance: ACETAMINOPHEN
     Indication: PLEURITIC PAIN
     Dosage: STRENGTH: 1950MG PRN
     Route: 048
     Dates: start: 20141008
  6. COZAAR PLUS PRO [Concomitant]
     Indication: HYPERTENSION
     Route: 065
     Dates: start: 20140717
  7. BENZYDAMINE HCL [Concomitant]
     Indication: STOMATITIS
     Dosage: ROUTE: GARGLE, DAILY DOSE: 100ML PRN
     Route: 050
     Dates: start: 20141008
  8. PREGABALIN. [Concomitant]
     Active Substance: PREGABALIN
     Indication: NEURALGIA
     Dosage: 300 MG
     Route: 048
  9. AFATINIB [Suspect]
     Active Substance: AFATINIB
     Indication: NON-SMALL CELL LUNG CANCER
     Dosage: 40 MG
     Route: 048
     Dates: start: 20140620, end: 20150226
  10. INSULIN [Concomitant]
     Active Substance: INSULIN NOS
     Indication: DIABETES MELLITUS
     Dosage: 75 U
     Route: 065
  11. AMOROLFINE [Concomitant]
     Active Substance: AMOROLFINE
     Indication: PARONYCHIA
     Dosage: 2.5 ML
     Route: 065
     Dates: start: 20140717
  12. HYDROCORTISONE. [Concomitant]
     Active Substance: HYDROCORTISONE
     Indication: DERMATITIS ACNEIFORM
     Dosage: ROUTE: EXTERNAL USE, DAILY DOSE 118ML PRN
     Route: 050
     Dates: start: 20140717

REACTIONS (3)
  - Diarrhoea [Recovered/Resolved]
  - Pyrexia [Recovered/Resolved]
  - Abdominal pain [Recovered/Resolved]

NARRATIVE: CASE EVENT DATE: 20150218
